FAERS Safety Report 23398438 (Version 1)
Quarter: 2024Q1

REPORT INFORMATION
  Report Type: Spontaneous
  Country: US (occurrence: None)
  Receive Date: 20240112
  Receipt Date: 20240112
  Transmission Date: 20240409
  Serious: Yes (Other)
  Sender: FDA-Public Use
  Company Number: None

PATIENT
  Age: 71 Year
  Sex: Male
  Weight: 110.25 kg

DRUGS (21)
  1. HALOPERIDOL [Suspect]
     Active Substance: HALOPERIDOL
     Indication: Intrusive thoughts
  2. SEROQUEL [Concomitant]
     Active Substance: QUETIAPINE FUMARATE
  3. PROTONIX [Concomitant]
     Active Substance: PANTOPRAZOLE SODIUM
  4. PEPCID [Concomitant]
     Active Substance: FAMOTIDINE
  5. DEPLIN [Concomitant]
     Active Substance: LEVOMEFOLATE CALCIUM
  6. CARDURA [Concomitant]
     Active Substance: DOXAZOSIN MESYLATE
  7. TADALAFIL [Concomitant]
     Active Substance: TADALAFIL
  8. TADALAFIL [Concomitant]
     Active Substance: TADALAFIL
  9. NORVASC [Concomitant]
     Active Substance: AMLODIPINE BESYLATE
  10. CRESTOR [Concomitant]
     Active Substance: ROSUVASTATIN CALCIUM
  11. LAMICTAL [Concomitant]
     Active Substance: LAMOTRIGINE
  12. LOW DOSE ASPIRIN [Concomitant]
     Active Substance: ASPIRIN
  13. NAPROXEN [Concomitant]
     Active Substance: NAPROXEN
  14. LYRICA [Concomitant]
     Active Substance: PREGABALIN
  15. LINZESS [Concomitant]
     Active Substance: LINACLOTIDE
  16. SOMA [Concomitant]
     Active Substance: CARISOPRODOL
  17. VITAMIN D [Concomitant]
     Active Substance: VITAMIN D NOS
  18. PEPPERMINT OIL [Concomitant]
     Active Substance: PEPPERMINT OIL
  19. soft tab Multivitamin [Concomitant]
  20. MAGNESIUM OXIDE [Concomitant]
     Active Substance: MAGNESIUM OXIDE
  21. VITAMIN B12 [Concomitant]
     Active Substance: CYANOCOBALAMIN

REACTIONS (3)
  - Depression [None]
  - Apathy [None]
  - Anhedonia [None]
